FAERS Safety Report 8960638 (Version 1)
Quarter: 2012Q4

REPORT INFORMATION
  Report Type: 
  Country: MX (occurrence: MX)
  Receive Date: 20121213
  Receipt Date: 20121213
  Transmission Date: 20130627
  Serious: Yes (Death, Hospitalization, Other)
  Sender: FDA-Public Use
  Company Number: PHHY2012MX114503

PATIENT
  Age: 79 Year
  Sex: Male

DRUGS (1)
  1. EXELON PATCH [Suspect]
     Indication: DEMENTIA ALZHEIMER^S TYPE
     Dosage: 9.5 mg, daily
     Route: 048

REACTIONS (9)
  - Death [Fatal]
  - Device related infection [Unknown]
  - Lower limb fracture [Unknown]
  - Paralysis [Unknown]
  - Fall [Unknown]
  - Abasia [Unknown]
  - Aphagia [Unknown]
  - Cerebral disorder [Unknown]
  - Incorrect route of drug administration [Unknown]
